FAERS Safety Report 16154075 (Version 2)
Quarter: 2019Q2

REPORT INFORMATION
  Report Type: Spontaneous
  Country: DE (occurrence: DE)
  Receive Date: 20190403
  Receipt Date: 20190426
  Transmission Date: 20190711
  Serious: Yes (Other)
  Sender: FDA-Public Use
  Company Number: DE-MYLANLABS-2019M1030011

PATIENT
  Age: 27 Year
  Sex: Female
  Weight: 94 kg

DRUGS (3)
  1. DOXEPIN [Suspect]
     Active Substance: DOXEPIN
     Indication: DEPRESSION
     Dosage: SEIT 9 JAHREN 37,5 MG, IN 2.5 MG-SCHRITTEN REDUZIERT, AKTUELL AM AUSSCHLEICHEN
     Route: 048
     Dates: start: 20090408
  2. DOXEPIN [Suspect]
     Active Substance: DOXEPIN
     Indication: PANIC DISORDER
     Dosage: 15 MILLIGRAM
     Route: 048
     Dates: start: 20180511
  3. DOXEPIN [Suspect]
     Active Substance: DOXEPIN
     Dosage: 12.5 MILLIGRAM
     Route: 048
     Dates: start: 20181114

REACTIONS (8)
  - Papilloedema [Recovered/Resolved]
  - Eye pain [Recovered/Resolved]
  - Tinnitus [Unknown]
  - Restlessness [Unknown]
  - Foreign body sensation in eyes [Recovering/Resolving]
  - Insomnia [Unknown]
  - Headache [Unknown]
  - Photophobia [Recovering/Resolving]

NARRATIVE: CASE EVENT DATE: 2018
